FAERS Safety Report 25591966 (Version 2)
Quarter: 2025Q3

REPORT INFORMATION
  Report Type: Spontaneous
  Country: US (occurrence: US)
  Receive Date: 20250722
  Receipt Date: 20250812
  Transmission Date: 20251020
  Serious: Yes (Other)
  Sender: ROCHE
  Company Number: US-ROCHE-10000342133

PATIENT
  Age: 84 Year
  Sex: Male
  Weight: 54 kg

DRUGS (2)
  1. FARICIMAB [Suspect]
     Active Substance: FARICIMAB
     Indication: Neovascular age-related macular degeneration
     Route: 050
     Dates: start: 20231116, end: 20240223
  2. FARICIMAB [Suspect]
     Active Substance: FARICIMAB
     Route: 050
     Dates: start: 20250711

REACTIONS (1)
  - Bacterial endophthalmitis [Recovered/Resolved]

NARRATIVE: CASE EVENT DATE: 20240325
